FAERS Safety Report 8607410-7 (Version None)
Quarter: 2012Q3

REPORT INFORMATION
  Report Type: 
  Country: None (occurrence: None)
  Receive Date: 20120809
  Receipt Date: 20120809
  Transmission Date: 20120928
  Serious: Yes (Life-Threatening, Hospitalization)
  Sender: FDA-Public Use
  Company Number: None

PATIENT
  Age: 88 Year
  Sex: Male
  Weight: 72.7 kg

DRUGS (2)
  1. LISINOPRIL [Suspect]
     Dosage: 10 MG PO EVERY DAY
     Route: 048
     Dates: start: 20090113, end: 20120222
  2. BARIUM SULFATE [Suspect]
     Dosage: ONCE  PO
     Route: 048
     Dates: start: 20120222, end: 20120222

REACTIONS (1)
  - ANGIOEDEMA [None]
